FAERS Safety Report 9027194 (Version 1)
Quarter: 2013Q1

REPORT INFORMATION
  Report Type: Spontaneous
  Country: US (occurrence: US)
  Receive Date: 20130123
  Receipt Date: 20130123
  Transmission Date: 20140127
  Serious: No
  Sender: FDA-Public Use
  Company Number: US-BAYER-2013-008301

PATIENT
  Age: 71 Year
  Sex: Female

DRUGS (1)
  1. CIPROFLOXACIN BETAIN [Suspect]
     Dosage: 500 MG, UNK
     Route: 042

REACTIONS (1)
  - Vocal cord disorder [Recovered/Resolved]
